FAERS Safety Report 11637738 (Version 2)
Quarter: 2015Q4

REPORT INFORMATION
  Report Type: Spontaneous
  Country: CZ (occurrence: CZ)
  Receive Date: 20151016
  Receipt Date: 20151116
  Transmission Date: 20160304
  Serious: Yes (Hospitalization, Disabling, Other)
  Sender: FDA-Public Use
  Company Number: CZ-TEVA-599674ISR

PATIENT
  Age: 69 Year
  Sex: Male

DRUGS (4)
  1. FOLINIC ACID [Suspect]
     Active Substance: LEUCOVORIN
     Indication: METASTASES TO LUNG
     Dosage: FOLFOX REGIMEN
     Route: 042
     Dates: start: 201407, end: 201412
  2. OXALIPLATIN. [Suspect]
     Active Substance: OXALIPLATIN
     Indication: METASTASES TO LUNG
     Dosage: FOLFOX REGIMEN
     Route: 042
     Dates: start: 201407, end: 201412
  3. FLUOROURACIL. [Concomitant]
     Active Substance: FLUOROURACIL
     Indication: METASTASES TO LUNG
     Dosage: FOLFOX REGIMEN
     Route: 042
     Dates: start: 201407, end: 201412
  4. BEVACIZUMAB [Concomitant]
     Active Substance: BEVACIZUMAB
     Indication: METASTASES TO LUNG
     Dates: start: 201407

REACTIONS (3)
  - Dyspnoea [Not Recovered/Not Resolved]
  - Pulmonary fibrosis [Not Recovered/Not Resolved]
  - Dyspnoea at rest [Not Recovered/Not Resolved]

NARRATIVE: CASE EVENT DATE: 201412
